FAERS Safety Report 11254026 (Version 5)
Quarter: 2017Q2

REPORT INFORMATION
  Report Type: Spontaneous
  Country: JP (occurrence: JP)
  Receive Date: 20150709
  Receipt Date: 20170530
  Transmission Date: 20170829
  Serious: Yes (Death, Life-Threatening, Hospitalization)
  Sender: FDA-Public Use
  Company Number: JP-SA-2015SA098156

PATIENT
  Age: 85 Year
  Sex: Male
  Weight: 55 kg

DRUGS (17)
  1. BROTIZOLAM [Suspect]
     Active Substance: BROTIZOLAM
     Indication: INSOMNIA
     Route: 048
     Dates: start: 20140927, end: 20150804
  2. AMLODIPINE [Concomitant]
     Active Substance: AMLODIPINE BESYLATE
     Indication: HYPERTENSION
     Route: 048
     Dates: start: 20130523, end: 20150804
  3. PLAVIX [Suspect]
     Active Substance: CLOPIDOGREL BISULFATE
     Indication: TRANSIENT ISCHAEMIC ATTACK
     Route: 048
     Dates: start: 20141015, end: 20150701
  4. BAYASPIRIN [Concomitant]
     Active Substance: ASPIRIN
     Indication: ANGINA PECTORIS
     Route: 048
     Dates: start: 20110812, end: 20150804
  5. NEXIUM [Suspect]
     Active Substance: ESOMEPRAZOLE MAGNESIUM
     Indication: ULCER
     Route: 048
     Dates: start: 20140925, end: 20150723
  6. CRESTOR [Concomitant]
     Active Substance: ROSUVASTATIN CALCIUM
     Indication: HYPERLIPIDAEMIA
     Route: 048
     Dates: start: 20120910, end: 20150804
  7. ULCERLMIN [Suspect]
     Active Substance: SUCRALFATE
     Indication: ULCER
     Route: 048
     Dates: start: 20140925, end: 20150105
  8. BIOFERMIN [Concomitant]
     Active Substance: BACILLUS SUBTILIS\LACTOBACILLUS ACIDOPHILUS\STREPTOCOCCUS FAECAIS
     Indication: DIARRHOEA
     Route: 048
     Dates: start: 20110727, end: 20150105
  9. ZETIA [Concomitant]
     Active Substance: EZETIMIBE
     Indication: HYPERLIPIDAEMIA
     Route: 048
     Dates: start: 20140127, end: 20150804
  10. PLAVIX [Suspect]
     Active Substance: CLOPIDOGREL BISULFATE
     Indication: STENT PLACEMENT
     Route: 048
     Dates: start: 20141015, end: 20150701
  11. FUROSEMIDE. [Suspect]
     Active Substance: FUROSEMIDE
     Indication: CARDIAC FAILURE
     Route: 048
     Dates: start: 20140922, end: 20150804
  12. PLAVIX [Suspect]
     Active Substance: CLOPIDOGREL BISULFATE
     Indication: ANGINA PECTORIS
     Route: 048
     Dates: start: 20141015, end: 20150701
  13. ALDACTONE-A [Suspect]
     Active Substance: SPIRONOLACTONE
     Indication: CARDIAC FAILURE
     Route: 048
     Dates: start: 20141008, end: 20150723
  14. MAGMITT [Suspect]
     Active Substance: MAGNESIUM OXIDE
     Indication: CONSTIPATION
     Route: 048
     Dates: start: 20141007, end: 20150804
  15. RENIVACE [Concomitant]
     Active Substance: ENALAPRIL
     Indication: HYPERTENSION
     Route: 048
     Dates: start: 20110727, end: 20150510
  16. PLAVIX [Suspect]
     Active Substance: CLOPIDOGREL BISULFATE
     Indication: ACUTE CORONARY SYNDROME
     Route: 048
     Dates: start: 20141015, end: 20150701
  17. PLAVIX [Suspect]
     Active Substance: CLOPIDOGREL BISULFATE
     Indication: MYOCARDIAL INFARCTION
     Route: 048
     Dates: start: 20141015, end: 20150701

REACTIONS (6)
  - Haemoglobin decreased [Unknown]
  - Platelet count decreased [Unknown]
  - Fatigue [Unknown]
  - Cardiac failure [Fatal]
  - Leukopenia [Unknown]
  - Aplastic anaemia [Not Recovered/Not Resolved]

NARRATIVE: CASE EVENT DATE: 20150223
